FAERS Safety Report 24696437 (Version 2)
Quarter: 2024Q4

REPORT INFORMATION
  Report Type: Report from Study
  Country: US (occurrence: US)
  Receive Date: 20241204
  Receipt Date: 20241209
  Transmission Date: 20250114
  Serious: Yes (Other)
  Sender: DR REDDYS
  Company Number: US-DRL-USA-CLI/USA/24/0017518

PATIENT
  Age: 8 Year
  Sex: Male

DRUGS (1)
  1. JAVYGTOR [Suspect]
     Active Substance: SAPROPTERIN DIHYDROCHLORIDE
     Indication: Phenylketonuria
     Route: 048
     Dates: end: 20241123

REACTIONS (2)
  - Pneumonia [Not Recovered/Not Resolved]
  - Product distribution issue [Unknown]

NARRATIVE: CASE EVENT DATE: 20241124
